FAERS Safety Report 6773308-2 (Version None)
Quarter: 2010Q2

REPORT INFORMATION
  Report Type: 
  Country: None (occurrence: None)
  Receive Date: 20100616
  Receipt Date: 20100406
  Transmission Date: 20101027
  Serious: No
  Sender: FDA-Public Use
  Company Number: US-ABBOTT-10P-163-0638220-00

PATIENT
  Sex: Female
  Weight: 54.48 kg

DRUGS (5)
  1. TRILIPIX [Suspect]
     Indication: BLOOD CHOLESTEROL INCREASED
     Dosage: EVERY EVENING
     Dates: start: 20090101, end: 20100201
  2. TRILIPIX [Suspect]
     Indication: LOW DENSITY LIPOPROTEIN INCREASED
  3. BENICAR [Concomitant]
     Indication: HYPERTENSION
  4. SYNTHROID [Concomitant]
     Indication: HYPOTHYROIDISM
  5. METFORMIN [Concomitant]
     Indication: DIABETES MELLITUS

REACTIONS (1)
  - PAIN IN EXTREMITY [None]
